FAERS Safety Report 7132426-X (Version None)
Quarter: 2010Q4

REPORT INFORMATION
  Report Type: 
  Country: None (occurrence: None)
  Receive Date: 20101202
  Receipt Date: 20101125
  Transmission Date: 20110411
  Serious: Yes (Life-Threatening, Hospitalization, Other)
  Sender: FDA-Public Use
  Company Number: GB-ROCHE-680523

PATIENT
  Age: 10 Year
  Sex: Male
  Weight: 32 kg

DRUGS (12)
  1. MYCOPHENOLATE MOFETIL [Suspect]
     Route: 065
  2. NELFINAVIR [Suspect]
     Indication: HIV INFECTION
     Route: 065
  3. ABACAVIR [Suspect]
     Dosage: DRUG WITHDRAWN
     Route: 065
  4. DIDANOSINE [Suspect]
     Dosage: DRUG WITHDRAWN
     Route: 065
  5. CO-TRIMOXAZOLE [Suspect]
     Dosage: DRUG WITHDRAWN
     Route: 065
  6. KIVEXA [Suspect]
     Route: 065
  7. LAMIVUDINE [Suspect]
     Route: 065
     Dates: start: 20070330, end: 20070701
  8. PREDNISOLONE [Suspect]
     Route: 065
  9. RALTEGRAVIR [Suspect]
     Route: 065
  10. RAPAMUNE [Suspect]
     Route: 065
  11. SUSTIVA [Suspect]
     Indication: HIV INFECTION
     Dosage: DRUG WITHDRAWN
     Route: 048
     Dates: start: 20070302, end: 20070701
  12. ZIDOVUDINE [Suspect]
     Route: 065
     Dates: start: 20070330, end: 20070701

REACTIONS (20)
  - ACUTE HEPATIC FAILURE [None]
  - CACHEXIA [None]
  - CHOLESTASIS [None]
  - DISEASE RECURRENCE [None]
  - DRUG TOXICITY [None]
  - GRAFT DYSFUNCTION [None]
  - HEPATIC ENCEPHALOPATHY [None]
  - HEPATIC FUNCTION ABNORMAL [None]
  - HYPERLIPIDAEMIA [None]
  - HYPERTENSION [None]
  - JAUNDICE [None]
  - LIVER FUNCTION TEST ABNORMAL [None]
  - LIVER TRANSPLANT [None]
  - LYMPHADENOPATHY [None]
  - MYOPATHY [None]
  - PHARYNGITIS [None]
  - RASH [None]
  - RENAL IMPAIRMENT [None]
  - TRANSPLANT REJECTION [None]
  - URINE COLOUR ABNORMAL [None]
